FAERS Safety Report 4279386-7 (Version None)
Quarter: 2004Q1

REPORT INFORMATION
  Report Type: 
  Country: None (occurrence: None)
  Receive Date: 20040127
  Receipt Date: 20040121
  Transmission Date: 20041129
  Serious: Yes (Hospitalization)
  Sender: FDA-Public Use
  Company Number: WAES 0401NOR00016

PATIENT
  Age: 85 Year
  Sex: Female

DRUGS (5)
  1. FOSAMAX [Suspect]
     Indication: OSTEOARTHRITIS
     Route: 048
  2. ASPIRIN AND MAGNESIUM OXIDE [Suspect]
     Route: 048
  3. ZESTORETIC [Concomitant]
     Route: 048
  4. VIOXX [Suspect]
     Indication: LOCALISED OSTEOARTHRITIS
     Route: 048
     Dates: start: 20030101, end: 20031231
  5. VERAPAMIL [Concomitant]
     Route: 048

REACTIONS (2)
  - GASTROINTESTINAL PAIN [None]
  - GASTROINTESTINAL ULCER [None]
